FAERS Safety Report 4822944-9 (Version None)
Quarter: 2005Q4

REPORT INFORMATION
  Report Type: 
  Country: None (occurrence: None)
  Receive Date: 20051107
  Receipt Date: 20051107
  Transmission Date: 20060501
  Serious: Yes (Life-Threatening, Hospitalization)
  Sender: FDA-Public Use
  Company Number: None

PATIENT
  Age: 41 Year
  Sex: Female
  Weight: 76.2043 kg

DRUGS (1)
  1. LEVAQUIN [Suspect]
     Indication: URINARY TRACT INFECTION
     Dosage: 1 PILL    2-TIMES PER-DAY
     Dates: start: 20001006, end: 20001007

REACTIONS (3)
  - BLISTER [None]
  - CORNEAL DISORDER [None]
  - STEVENS-JOHNSON SYNDROME [None]
